FAERS Safety Report 6195124-5 (Version None)
Quarter: 2009Q2

REPORT INFORMATION
  Report Type: 
  Country: None (occurrence: None)
  Receive Date: 20090519
  Receipt Date: 20090512
  Transmission Date: 20091009
  Serious: Yes (Other)
  Sender: FDA-Public Use
  Company Number: FR-JNJFOC-20090502975

PATIENT
  Sex: Female

DRUGS (3)
  1. RISPERDAL [Suspect]
     Indication: BULIMIA NERVOSA
     Route: 048
  2. IBUPROFENE [Concomitant]
     Route: 065
  3. SOLUPRED [Concomitant]
     Route: 065

REACTIONS (2)
  - NEUTROPHIL COUNT DECREASED [None]
  - OFF LABEL USE [None]
